FAERS Safety Report 5202275-8 (Version None)
Quarter: 2007Q1

REPORT INFORMATION
  Report Type: 
  Country: None (occurrence: None)
  Receive Date: 20070109
  Receipt Date: 20061227
  Transmission Date: 20070707
  Serious: Yes (Other)
  Sender: FDA-Public Use
  Company Number: AU-GLAXOSMITHKLINE-B0452787A

PATIENT
  Age: 10 Year
  Sex: Male

DRUGS (17)
  1. MELPHALAN [Suspect]
     Indication: NON-HODGKIN'S LYMPHOMA
     Dosage: 140MGM2 CUMULATIVE DOSE
     Route: 065
  2. SULFAMETHOXAZOLE AND TRIMETHOPRIM [Suspect]
     Route: 065
  3. ACETAMINOPHEN [Suspect]
     Route: 065
  4. NEUPOGEN [Suspect]
     Route: 065
  5. ONDANSETRON [Suspect]
     Route: 065
  6. RANITIDINE [Suspect]
     Route: 065
  7. PREDNISOLONE [Suspect]
     Route: 065
  8. CIPROFLOXACIN [Suspect]
     Route: 065
  9. AMPHOTERICIN B [Suspect]
     Route: 065
  10. OMEPRAZOLE [Suspect]
     Route: 065
  11. TACROLIMUS [Suspect]
     Route: 065
  12. TICARCILLIN + CLAVULANIC ACID [Concomitant]
     Route: 065
  13. AMOXICILLIN + CLAVULANIC ACID [Concomitant]
  14. CEPHALOTHIN [Concomitant]
     Route: 065
  15. CIDOFOVIR [Concomitant]
     Route: 065
  16. PROBENECID [Concomitant]
     Route: 065
  17. TEICOPLANIN [Concomitant]
     Route: 065

REACTIONS (5)
  - ABDOMINAL PAIN [None]
  - BLOOD AMYLASE INCREASED [None]
  - LIPASE INCREASED [None]
  - PANCREATITIS [None]
  - VOMITING [None]
